FAERS Safety Report 5280867-8 (Version None)
Quarter: 2007Q1

REPORT INFORMATION
  Report Type: 
  Country: None (occurrence: None)
  Receive Date: 20070329
  Receipt Date: 20070320
  Transmission Date: 20070707
  Serious: Yes (Hospitalization)
  Sender: FDA-Public Use
  Company Number: JP-PFIZER INC-2007023999

PATIENT
  Age: 37 Year
  Sex: Female

DRUGS (4)
  1. CETIRIZINE HCL [Suspect]
     Indication: PRURITUS
     Dosage: DAILY DOSE:10MG
     Route: 048
     Dates: start: 20070301, end: 20070318
  2. PREDNISOLONE [Concomitant]
  3. ALENDRONIC ACID [Concomitant]
  4. RANITIDINE HYDROCHLORIDE [Concomitant]

REACTIONS (2)
  - HEPATIC FUNCTION ABNORMAL [None]
  - WHITE BLOOD CELL COUNT DECREASED [None]
